FAERS Safety Report 6397916-6 (Version None)
Quarter: 2009Q4

REPORT INFORMATION
  Report Type: 
  Country: None (occurrence: None)
  Receive Date: 20091013
  Receipt Date: 20091004
  Transmission Date: 20100525
  Serious: Yes (Hospitalization)
  Sender: FDA-Public Use
  Company Number: CA-ALLERGAN-0913881US

PATIENT
  Age: 39 Year
  Sex: Female

DRUGS (10)
  1. BOTOX [Suspect]
     Indication: CEREBRAL PALSY
     Dosage: 500 UNITS, SINGLE
     Route: 030
     Dates: start: 20070201, end: 20070201
  2. BOTOX [Suspect]
     Indication: MUSCLE SPASTICITY
     Dosage: 500 UNITS, SINGLE
     Route: 030
     Dates: start: 20061101, end: 20061101
  3. BOTOX [Suspect]
     Indication: PARAPARESIS
     Dosage: 500 UNITS, SINGLE
     Route: 030
     Dates: start: 20060601, end: 20060601
  4. BOTOX [Suspect]
     Dosage: 500 UNITS, SINGLE
     Route: 030
     Dates: start: 20060201, end: 20060201
  5. BOTOX [Suspect]
     Dosage: 500 UNITS, SINGLE
     Route: 030
     Dates: start: 20051001, end: 20051001
  6. BOTOX [Suspect]
     Dosage: 500 UNITS, SINGLE
     Route: 030
     Dates: start: 20050601, end: 20050601
  7. BOTOX [Suspect]
     Dosage: 500 UNITS, SINGLE
     Route: 030
     Dates: start: 20050101, end: 20050101
  8. BOTOX [Suspect]
     Dosage: 500 UNITS, SINGLE
     Route: 030
     Dates: start: 20040501, end: 20040501
  9. BOTOX [Suspect]
     Dosage: 400 UNITS, SINGLE
     Route: 030
     Dates: start: 20040201, end: 20040201
  10. BOTOX [Suspect]
     Dosage: 300 UNITS, SINGLE
     Route: 030
     Dates: start: 20031001, end: 20031001

REACTIONS (1)
  - ASTHENIA [None]
